FAERS Safety Report 25318909 (Version 1)
Quarter: 2025Q2

REPORT INFORMATION
  Report Type: Spontaneous
  Country: SI (occurrence: SI)
  Receive Date: 20250515
  Receipt Date: 20250515
  Transmission Date: 20250716
  Serious: Yes (Other)
  Sender: NOVARTIS
  Company Number: SI-002147023-NVSC2025SI076076

PATIENT
  Sex: Female

DRUGS (3)
  1. CYCLOSPORINE [Suspect]
     Active Substance: CYCLOSPORINE
     Indication: Chronic myeloid leukaemia
     Route: 065
     Dates: start: 201904
  2. Antimycotic [Concomitant]
     Indication: Product used for unknown indication
     Route: 065
  3. Virostatic [Concomitant]
     Indication: Product used for unknown indication
     Route: 065

REACTIONS (4)
  - Pneumonia [Unknown]
  - Pneumonia pseudomonal [Unknown]
  - Chronic myeloid leukaemia recurrent [Unknown]
  - Off label use [Unknown]

NARRATIVE: CASE EVENT DATE: 20190401
